FAERS Safety Report 21141348 (Version 5)
Quarter: 2022Q3

REPORT INFORMATION
  Report Type: Spontaneous
  Country: JP (occurrence: JP)
  Receive Date: 20220728
  Receipt Date: 20220930
  Transmission Date: 20221027
  Serious: Yes (Hospitalization)
  Sender: FDA-Public Use
  Company Number: JP-JNJFOC-20220756403

PATIENT
  Age: 61 Year
  Sex: Male
  Weight: 50.5 kg

DRUGS (6)
  1. REMINYL [Suspect]
     Active Substance: GALANTAMINE
     Indication: Dementia Alzheimer^s type
     Dosage: AFTER BREAKFAST AND DINNER
     Route: 048
     Dates: start: 20210706
  2. NEXIUM [Concomitant]
     Active Substance: ESOMEPRAZOLE MAGNESIUM
     Indication: Gastritis prophylaxis
     Dosage: AFTER DINNER
     Route: 048
     Dates: start: 20210426
  3. METGLUCO [Concomitant]
     Active Substance: METFORMIN HYDROCHLORIDE
     Indication: Type 2 diabetes mellitus
     Dosage: BEFORE LUNCH AND DINNER
     Route: 048
     Dates: start: 20220314
  4. GLUCOBAY [Concomitant]
     Active Substance: ACARBOSE
     Indication: Type 2 diabetes mellitus
     Dosage: BEFORE LUNCH AND DINNER
     Route: 048
     Dates: start: 20220314
  5. GLICLAZIDE [Concomitant]
     Active Substance: GLICLAZIDE
     Indication: Type 2 diabetes mellitus
     Dosage: RIGHT BEFORE LUNCH
     Route: 048
     Dates: start: 20210629
  6. TENELIGLIPTIN [Concomitant]
     Active Substance: TENELIGLIPTIN
     Indication: Type 2 diabetes mellitus
     Dosage: BEFORE LUNCH
     Route: 048
     Dates: start: 20220627

REACTIONS (2)
  - Nephrolithiasis [Recovered/Resolved]
  - Adrenal mass [Not Recovered/Not Resolved]

NARRATIVE: CASE EVENT DATE: 20220420
